FAERS Safety Report 8165552-7 (Version None)
Quarter: 2012Q1

REPORT INFORMATION
  Report Type: 
  Country: None (occurrence: None)
  Receive Date: 20120227
  Receipt Date: 20120217
  Transmission Date: 20120608
  Serious: Yes (Hospitalization)
  Sender: FDA-Public Use
  Company Number: US-US-EMD SERONO, INC.-7103023

PATIENT
  Sex: Female

DRUGS (3)
  1. REBIF [Suspect]
     Indication: MULTIPLE SCLEROSIS
     Route: 058
     Dates: start: 20110630, end: 20111101
  2. REBIF [Suspect]
     Route: 058
  3. REBIF [Suspect]
     Route: 058

REACTIONS (6)
  - MULTIPLE SCLEROSIS RELAPSE [None]
  - ASTHENIA [None]
  - DEPRESSED MOOD [None]
  - INFLUENZA LIKE ILLNESS [None]
  - INFECTION [None]
  - GRAND MAL CONVULSION [None]
